FAERS Safety Report 10756818 (Version 1)
Quarter: 2015Q1

REPORT INFORMATION
  Report Type: Report from Study
  Country: US (occurrence: US)
  Receive Date: 20150203
  Receipt Date: 20150203
  Transmission Date: 20150721
  Serious: Yes (Death, Other)
  Sender: FDA-Public Use
  Company Number: US-ROCHE-707160

PATIENT
  Sex: Female

DRUGS (3)
  1. TRASTUZUMAB [Suspect]
     Active Substance: TRASTUZUMAB
     Indication: HER-2 POSITIVE BREAST CANCER
     Dosage: LOADING DOSE, ADMINISTERED OVER 90 MINS.
     Route: 042
  2. RIDAFOROLIMUS [Suspect]
     Active Substance: RIDAFOROLIMUS
     Indication: HER-2 POSITIVE BREAST CANCER
     Dosage: 5 DAYS PER WEEK (BEFORE RECEIVING TRASTUZUMAB).
     Route: 048
  3. TRASTUZUMAB [Suspect]
     Active Substance: TRASTUZUMAB
     Dosage: OVER 30 MINS?(DAYS 8, 15, AND 22 OF CYCLE 1 AND DAYS 1, 8, 15, AND 22 OF EACH SUBSEQUENT CYCLE)
     Route: 042

REACTIONS (19)
  - Mucosal inflammation [Unknown]
  - Anal inflammation [Unknown]
  - Intestinal perforation [Fatal]
  - Stomatitis [Unknown]
  - Thrombocytopenia [Unknown]
  - Abdominal pain [Unknown]
  - Aspartate aminotransferase increased [Unknown]
  - Pneumonitis [Unknown]
  - Swollen tongue [Unknown]
  - Alanine aminotransferase increased [Unknown]
  - Fatigue [Unknown]
  - Asthenia [Unknown]
  - Neutropenia [Unknown]
  - Diarrhoea [Unknown]
  - Venous thrombosis [Unknown]
  - Renal failure [Unknown]
  - Hyperglycaemia [Unknown]
  - Dysphagia [Unknown]
  - Leukopenia [Unknown]
